FAERS Safety Report 5568656-8 (Version None)
Quarter: 2007Q4

REPORT INFORMATION
  Report Type: 
  Country: None (occurrence: None)
  Receive Date: 20071220
  Receipt Date: 20071217
  Transmission Date: 20080405
  Serious: Yes (Death)
  Sender: FDA-Public Use
  Company Number: BE-ASTRAZENECA-2007AC02473

PATIENT
  Age: 64 Year
  Sex: Male

DRUGS (6)
  1. TAMOXIFEN CITRATE [Suspect]
     Indication: GYNAECOMASTIA
     Route: 048
  2. BISOPROLOL [Concomitant]
  3. ASPIRIN [Concomitant]
  4. HEPARIN [Concomitant]
  5. ABCIXIMAB [Concomitant]
  6. CLOPIDOGREL [Concomitant]

REACTIONS (1)
  - CORONARY ARTERY EMBOLISM [None]
